FAERS Safety Report 8242009-6 (Version None)
Quarter: 2012Q1

REPORT INFORMATION
  Report Type: 
  Country: None (occurrence: None)
  Receive Date: 20120329
  Receipt Date: 20120320
  Transmission Date: 20120608
  Serious: No
  Sender: FDA-Public Use
  Company Number: US-BIOGENIDEC-2012BI009890

PATIENT
  Age: 53 Year
  Sex: Female

DRUGS (1)
  1. TYSABRI [Suspect]
     Indication: MULTIPLE SCLEROSIS
     Route: 042
     Dates: start: 20110824

REACTIONS (6)
  - BALANCE DISORDER [None]
  - AMNESIA [None]
  - DIZZINESS [None]
  - DYSARTHRIA [None]
  - MUSCLE SPASTICITY [None]
  - HYPOAESTHESIA [None]
